FAERS Safety Report 24396219 (Version 1)
Quarter: 2024Q4

REPORT INFORMATION
  Report Type: Spontaneous
  Country: US (occurrence: US)
  Receive Date: 20241004
  Receipt Date: 20241004
  Transmission Date: 20250114
  Serious: Yes (Other)
  Sender: TEVA
  Company Number: US-TEVA-VS-3247746

PATIENT
  Age: 83 Year
  Sex: Female

DRUGS (7)
  1. PREDNISONE [Suspect]
     Active Substance: PREDNISONE
     Indication: Polymyalgia rheumatica
     Route: 065
     Dates: start: 20230420
  2. PREDNISONE [Suspect]
     Active Substance: PREDNISONE
     Indication: Polymyalgia rheumatica
     Route: 065
     Dates: start: 20230119
  3. PREDNISONE [Suspect]
     Active Substance: PREDNISONE
     Indication: Polymyalgia rheumatica
     Dosage: THEN DROPPED BY INCREMENTS OF 5 EVERY WEEK UNTIL SHE GOT DOWN TO 20 MG
     Route: 065
  4. PREDNISONE [Suspect]
     Active Substance: PREDNISONE
     Indication: Polymyalgia rheumatica
     Route: 065
  5. PREDNISONE [Suspect]
     Active Substance: PREDNISONE
     Indication: Polymyalgia rheumatica
     Dosage: DROPPED DOWN 1 MG EVERY TWO WEEKS
     Route: 065
     Dates: end: 2024
  6. PREDNISONE [Suspect]
     Active Substance: PREDNISONE
     Indication: Polymyalgia rheumatica
     Route: 065
     Dates: start: 20240823
  7. Nutrofol [Concomitant]
     Indication: Alopecia

REACTIONS (8)
  - Hypothyroidism [Unknown]
  - Pain [Recovering/Resolving]
  - Blood thyroid stimulating hormone increased [Unknown]
  - Swelling [Recovering/Resolving]
  - Neck pain [Recovering/Resolving]
  - Symptom recurrence [Unknown]
  - Nervousness [Unknown]
  - Alopecia [Recovering/Resolving]

NARRATIVE: CASE EVENT DATE: 20240101
